FAERS Safety Report 7208126-4 (Version None)
Quarter: 2010Q4

REPORT INFORMATION
  Report Type: 
  Country: None (occurrence: None)
  Receive Date: 20101230
  Receipt Date: 20101230
  Transmission Date: 20110411
  Serious: No
  Sender: FDA-Public Use
  Company Number: None

PATIENT
  Sex: Male
  Weight: 95.2554 kg

DRUGS (2)
  1. ENALAPRIL MALEATE [Suspect]
     Indication: HYPERTENSION
     Dosage: ONE TAB AM PO; TWO TABS PM PO
     Route: 048
     Dates: start: 20100604, end: 20101207
  2. ENALAPRIL MALEATE [Suspect]
     Indication: HYPERTENSION
     Dosage: ONE TAB AM PO; TWO TABS PM PO
     Route: 048
     Dates: start: 20100604, end: 20101207

REACTIONS (2)
  - ANGIOEDEMA [None]
  - OEDEMA MOUTH [None]
